FAERS Safety Report 6771153-5 (Version None)
Quarter: 2010Q2

REPORT INFORMATION
  Report Type: 
  Country: None (occurrence: None)
  Receive Date: 20100614
  Receipt Date: 20100614
  Transmission Date: 20101027
  Serious: Yes (Other)
  Sender: FDA-Public Use
  Company Number: None

PATIENT
  Age: 56 Year
  Sex: Female
  Weight: 51 kg

DRUGS (2)
  1. RENAGEL [Suspect]
     Indication: BLOOD PHOSPHORUS
     Dosage: 4 TAB. 3 TIMES A DAY
     Dates: start: 20100517, end: 20100518
  2. RENAGEL [Suspect]

REACTIONS (7)
  - DIARRHOEA [None]
  - DYSGEUSIA [None]
  - EATING DISORDER [None]
  - ERUCTATION [None]
  - NAUSEA [None]
  - PAROSMIA [None]
  - PRODUCT ODOUR ABNORMAL [None]
